FAERS Safety Report 16946784 (Version 6)
Quarter: 2021Q1

REPORT INFORMATION
  Report Type: Spontaneous
  Country: US (occurrence: US)
  Receive Date: 20191022
  Receipt Date: 20210104
  Transmission Date: 20210419
  Serious: No
  Sender: FDA-Public Use
  Company Number: US-PFIZER INC-2019454096

PATIENT
  Age: 64 Year
  Sex: Female
  Weight: 105 kg

DRUGS (6)
  1. LYRICA [Suspect]
     Active Substance: PREGABALIN
     Indication: NEUROPATHY PERIPHERAL
     Dosage: 150 MG, 2X/DAY
     Dates: start: 2006
  2. LYRICA [Suspect]
     Active Substance: PREGABALIN
     Dosage: 200 MG, 2X/DAY
  3. LYRICA [Suspect]
     Active Substance: PREGABALIN
     Dosage: UNK
  4. LYRICA [Suspect]
     Active Substance: PREGABALIN
     Dosage: 500 MG, UNK
  5. LYRICA [Suspect]
     Active Substance: PREGABALIN
     Dosage: 200 MG, 2X/DAY (200MG CAPSULE BY MOUTH; ONE IN THE MORNING AND ONE AT NIGHT)
     Route: 048
     Dates: start: 2015
  6. LYRICA [Suspect]
     Active Substance: PREGABALIN
     Dosage: UNK
     Dates: start: 2018

REACTIONS (1)
  - Therapeutic product effect incomplete [Recovered/Resolved]
